FAERS Safety Report 11880843 (Version 6)
Quarter: 2018Q1

REPORT INFORMATION
  Report Type: Report from Study
  Country: US (occurrence: US)
  Receive Date: 20151230
  Receipt Date: 20180205
  Transmission Date: 20180508
  Serious: Yes (Hospitalization, Other)
  Sender: FDA-Public Use
  Company Number: US-ACTELION-A-NJ2015-129189

PATIENT
  Age: 72 Year
  Sex: Female
  Weight: 52.15 kg

DRUGS (5)
  1. XARELTO [Concomitant]
     Active Substance: RIVAROXABAN
  2. TYVASO [Concomitant]
     Active Substance: TREPROSTINIL
  3. ORENITRAM [Concomitant]
     Active Substance: TREPROSTINIL
  4. OPSUMIT [Suspect]
     Active Substance: MACITENTAN
     Indication: PULMONARY HYPERTENSION
     Dosage: 10 MG, QD
     Route: 048
     Dates: start: 20140630
  5. DILTIAZEM. [Concomitant]
     Active Substance: DILTIAZEM

REACTIONS (4)
  - Stress [Unknown]
  - Myocardial infarction [Unknown]
  - Pneumonia [Unknown]
  - Dyspnoea [Unknown]
